FAERS Safety Report 7221659-X (Version None)
Quarter: 2011Q1

REPORT INFORMATION
  Report Type: 
  Country: None (occurrence: None)
  Receive Date: 20110112
  Receipt Date: 20110103
  Transmission Date: 20110831
  Serious: Yes (Death)
  Sender: FDA-Public Use
  Company Number: FR-GENENTECH-311696

PATIENT
  Sex: Female
  Weight: 84 kg

DRUGS (5)
  1. BENDAMUSTINE [Suspect]
     Indication: CHRONIC LYMPHOCYTIC LEUKAEMIA
     Dosage: 132 MG, 1/MONTH
     Route: 042
     Dates: start: 20100623
  2. RITUXIMAB [Suspect]
     Indication: CHRONIC LYMPHOCYTIC LEUKAEMIA
     Dosage: 940 MG, 1/MONTH
     Route: 042
     Dates: start: 20100623, end: 20101115
  3. ALLOPURINOL [Concomitant]
     Indication: PRODUCT USED FOR UNKNOWN INDICATION
  4. NEBIVOLOL HCL [Concomitant]
     Indication: PRODUCT USED FOR UNKNOWN INDICATION
  5. KARDEGIC [Concomitant]
     Indication: PRODUCT USED FOR UNKNOWN INDICATION

REACTIONS (4)
  - GAIT DISTURBANCE [None]
  - FATIGUE [None]
  - SYNCOPE [None]
  - DEATH [None]
